FAERS Safety Report 9334727 (Version 1)
Quarter: 2013Q2

REPORT INFORMATION
  Report Type: Spontaneous
  Country: US (occurrence: US)
  Receive Date: 20130606
  Receipt Date: 20130606
  Transmission Date: 20140414
  Serious: No
  Sender: FDA-Public Use
  Company Number: US-AMGEN-USASP2013016088

PATIENT
  Age: 80 Year
  Sex: Female

DRUGS (10)
  1. PROLIA [Suspect]
     Indication: OSTEOPOROSIS POSTMENOPAUSAL
     Dosage: UNK
     Dates: start: 201206
  2. PREDNISONE [Concomitant]
     Dosage: 5 MG, QD
  3. ZOCOR [Concomitant]
     Dosage: 40 MG, QD
  4. TOPROL XL [Concomitant]
     Dosage: 100 MG, QD
  5. LOTREL [Concomitant]
     Dosage: UNK
  6. FOLIC ACID [Concomitant]
     Dosage: UNK UNK, QD
  7. METHOTREXATE [Concomitant]
     Dosage: 2.5 MG, QWK
  8. CENTRUM SILVER                     /02363801/ [Concomitant]
  9. CALCIUM [Concomitant]
     Dosage: 600 MG, BID
  10. ASPIRIN [Concomitant]
     Dosage: 81 MG, UNK

REACTIONS (5)
  - Mobility decreased [Unknown]
  - Muscular weakness [Unknown]
  - Insomnia [Unknown]
  - Myalgia [Unknown]
  - Pain in extremity [Unknown]
